FAERS Safety Report 5842068-1 (Version None)
Quarter: 2008Q3

REPORT INFORMATION
  Report Type: 
  Country: None (occurrence: None)
  Receive Date: 20080812
  Receipt Date: 20080730
  Transmission Date: 20090109
  Serious: Yes (Hospitalization)
  Sender: FDA-Public Use
  Company Number: FR-ROCHE-542332

PATIENT
  Sex: Female
  Weight: 109 kg

DRUGS (36)
  1. PEGASYS [Suspect]
     Dosage: LAST DOSE PRIOR TO SAE RECEIVED ON 11 JANUARY 2008.
     Route: 058
     Dates: start: 20070529
  2. RIBAVIRIN [Suspect]
     Route: 048
     Dates: start: 20070529
  3. RIBAVIRIN [Suspect]
     Route: 048
  4. RIBAVIRIN [Suspect]
     Dosage: LAST DOSE PRIOR TO SAE: 13 JANUARY 2008
     Route: 048
  5. EPOETIN BETA [Suspect]
     Dosage: DOSING AMOUNT REPORTED AS 30000UI
     Route: 058
     Dates: start: 20070613
  6. EPOETIN BETA [Suspect]
     Dosage: LAST DOSE PRIOR TO SAE: 12 JANUARY 2008
     Route: 058
  7. ALDALIX [Concomitant]
     Dosage: DRUG REPORTED AS ALTALIX 50 MG. TDD REPORTED AS 1 CP.
     Dates: start: 19860101
  8. ATENOLOL [Concomitant]
     Dates: start: 19860101
  9. LEVOTHYROX [Concomitant]
     Dates: start: 19860101
  10. LEVOTHYROX [Concomitant]
     Dates: start: 19860101
  11. DEROXAT [Concomitant]
     Dates: start: 20060314
  12. DEROXAT [Concomitant]
     Dates: start: 20060314
  13. UTROGESTAN [Concomitant]
     Dates: start: 20050101
  14. BEDELIX [Concomitant]
     Dates: start: 20070101, end: 20071001
  15. ZYLORIC [Concomitant]
     Dates: start: 20070914
  16. SPASFON-LYOC [Concomitant]
     Dates: start: 20070627, end: 20071001
  17. LAROXYL [Concomitant]
     Dosage: TDD REPORTED AS 10 GOUT
     Dates: start: 20070701
  18. ESTROGEL [Concomitant]
     Dates: start: 20050101
  19. NEXIUM [Concomitant]
     Dates: start: 20071002
  20. STILNOX [Concomitant]
     Dates: start: 20071101
  21. STILNOX [Concomitant]
     Dates: start: 20071101
  22. XYZAL [Concomitant]
     Dates: start: 20071113
  23. TRIFLUCAN [Concomitant]
     Dates: start: 20071228
  24. TRIFLUCAN [Concomitant]
     Dates: start: 20080111
  25. PROCTOLOG [Concomitant]
     Dates: start: 20071129
  26. EDUCTYL [Concomitant]
     Dates: start: 20071129
  27. AMOXICILLIN [Concomitant]
     Dates: start: 20080415, end: 20080429
  28. AMOXICILLIN [Concomitant]
     Dosage: DRUG NAME REPORTED AS AMOXICILINE.
     Dates: start: 20080401, end: 20080401
  29. DOLIPRANE [Concomitant]
     Dates: start: 20070525
  30. LOCOID [Concomitant]
     Dosage: DRUG NAME : LOCOID LOTION
     Dates: start: 20071201
  31. DIPROSONE [Concomitant]
     Dates: start: 20071201
  32. ACETAMINOPHEN [Concomitant]
     Dates: start: 20080510, end: 20080516
  33. AUGMENTIN '125' [Concomitant]
     Dates: start: 20080510, end: 20080513
  34. TAVANIC [Concomitant]
     Dates: start: 20080520, end: 20080601
  35. TIORFAN [Concomitant]
     Dates: start: 20080501
  36. SMECTA [Concomitant]
     Dosage: TDD: 3 BAGS
     Dates: start: 20080501

REACTIONS (2)
  - ANAL ABSCESS [None]
  - BARTHOLIN'S ABSCESS [None]
